FAERS Safety Report 24036921 (Version 1)
Quarter: 2024Q3

REPORT INFORMATION
  Report Type: Spontaneous
  Country: CN (occurrence: CN)
  Receive Date: 20240701
  Receipt Date: 20240701
  Transmission Date: 20241017
  Serious: Yes (Hospitalization)
  Sender: FRESENIUS KABI
  Company Number: CN-FreseniusKabi-FK202410060

PATIENT
  Age: 56 Year
  Sex: Female
  Weight: 53 kg

DRUGS (13)
  1. PROPOFOL 1% [Suspect]
     Active Substance: PROPOFOL
     Indication: General anaesthesia
     Dosage: DOSAGE FORM: INJECTION?ROUTE OF ADMIN: INTRAVENOUS INJECTION
     Dates: start: 20240619, end: 20240619
  2. PROPOFOL 1% [Suspect]
     Active Substance: PROPOFOL
     Indication: Induction of anaesthesia
  3. REMIFENTANIL HYDROCHLORIDE [Suspect]
     Active Substance: REMIFENTANIL HYDROCHLORIDE
     Indication: General anaesthesia
     Dosage: DOSAGE FORM: POWDER FOR INJECTION?ROA: INTRAVENOUS
     Dates: start: 20240619, end: 20240619
  4. LACTATED RINGERS SOLUTION [Concomitant]
     Active Substance: CALCIUM CHLORIDE\POTASSIUM CHLORIDE\SODIUM CHLORIDE\SODIUM LACTATE
     Indication: Fluid replacement
     Dosage: DOSAGE FORM: INJECTION?ROA: INTRAVENOUS
     Dates: start: 20240619, end: 20240619
  5. ETOMIDATE [Concomitant]
     Active Substance: ETOMIDATE
     Indication: General anaesthesia
     Dosage: DOSAGE FORM: INJECTION?ROA: INTRAVENOUS
     Dates: start: 20240619, end: 20240619
  6. Clindamycin Phosphate Injection [Concomitant]
     Indication: Infection prophylaxis
     Dosage: DOSE: 0.6 GRAM?DOSAGE FORM: INJECTION?ROA: INTRAVENOUS DRIP
     Dates: start: 20240619, end: 20240619
  7. SEVOFLURANE [Concomitant]
     Active Substance: SEVOFLURANE
     Indication: General anaesthesia
     Dosage: DOSAGE FORM: SOLUTION FOR INHALATION?ROA: RESPIRATORY (INHALATION)
     Dates: start: 20240619, end: 20240619
  8. MIDAZOLAM HYDROCHLORIDE [Concomitant]
     Active Substance: MIDAZOLAM HYDROCHLORIDE
     Indication: General anaesthesia
     Dosage: DOSAGE FORM: INJECTION?ROA: INTRAVENOUS
     Dates: start: 20240619, end: 20240619
  9. SUFENTANIL CITRATE [Concomitant]
     Active Substance: SUFENTANIL CITRATE
     Indication: General anaesthesia
     Dosage: DOSAGE FORM: INJECTION?ROA: INTRAVENOUS DRIP
     Dates: start: 20240619, end: 20240619
  10. TRANEXAMIC ACID [Concomitant]
     Active Substance: TRANEXAMIC ACID
     Indication: Procoagulant therapy
     Dosage: DOSE: 0.5 GRAM?DOSAGE FORM: INJECTION?ROA: INTRAVENOUS DRIP
     Dates: start: 20240619, end: 20240619
  11. SODIUM CHLORIDE [Concomitant]
     Active Substance: SODIUM CHLORIDE
     Indication: Vehicle solution use
     Dosage: DOSAGE FORM: INJECTION?ROA: INTRAVENOUS DRIP
     Dates: start: 20240619, end: 20240619
  12. PENEHYCLIDINE HYDROCHLORIDE [Concomitant]
     Active Substance: PENEHYCLIDINE HYDROCHLORIDE
     Indication: General anaesthesia
     Dosage: DOSE: 0.5 GRAM?DOSAGE FORM: INJECTION?ROA: INTRAVENOUS
     Dates: start: 20240619, end: 20240619
  13. ROCURONIUM BROMIDE [Concomitant]
     Active Substance: ROCURONIUM BROMIDE
     Indication: General anaesthesia
     Dosage: DOSAGE FORM: INJECTION?ROA: INTRVENOUS
     Dates: start: 20240619, end: 20240619

REACTIONS (2)
  - Blood pressure decreased [Recovering/Resolving]
  - Airway peak pressure increased [Recovering/Resolving]

NARRATIVE: CASE EVENT DATE: 20240619
